FAERS Safety Report 15555396 (Version 2)
Quarter: 2018Q4

REPORT INFORMATION
  Report Type: Report from Study
  Country: CA (occurrence: CA)
  Receive Date: 20181026
  Receipt Date: 20181029
  Transmission Date: 20190205
  Serious: Yes (Hospitalization)
  Sender: FDA-Public Use
  Company Number: PHHY2018CA132991

PATIENT
  Age: 69 Year
  Sex: Female

DRUGS (5)
  1. TASIGNA [Suspect]
     Active Substance: NILOTINIB
     Indication: CHRONIC MYELOID LEUKAEMIA
     Dosage: 300 MG, BID
     Route: 048
  2. TASIGNA [Suspect]
     Active Substance: NILOTINIB
     Dosage: 800 MG (200 MG), QD
     Route: 048
  3. TASIGNA [Suspect]
     Active Substance: NILOTINIB
     Dosage: UNK (FULL DOSE)
     Route: 065
     Dates: start: 201808
  4. TASIGNA [Suspect]
     Active Substance: NILOTINIB
     Dosage: UNK (HALF DOSE)
     Route: 048
     Dates: start: 201808
  5. IMATINIB. [Suspect]
     Active Substance: IMATINIB MESYLATE
     Indication: CHRONIC MYELOID LEUKAEMIA
     Dosage: 400 MG, QD
     Route: 065

REACTIONS (7)
  - Diarrhoea [Recovering/Resolving]
  - Internal haemorrhage [Recovering/Resolving]
  - Oedema [Recovering/Resolving]
  - Fatigue [Unknown]
  - Nausea [Unknown]
  - Drug intolerance [Recovering/Resolving]
  - Vomiting [Unknown]

NARRATIVE: CASE EVENT DATE: 20181022
